FAERS Safety Report 7584899-6 (Version None)
Quarter: 2011Q2

REPORT INFORMATION
  Report Type: 
  Country: None (occurrence: None)
  Receive Date: 20110630
  Receipt Date: 20110324
  Transmission Date: 20111010
  Serious: Yes (Hospitalization, Other)
  Sender: FDA-Public Use
  Company Number: PHHY2011FR30802

PATIENT
  Sex: Female
  Weight: 60 kg

DRUGS (51)
  1. MODOPAR [Suspect]
     Indication: PARKINSON'S DISEASE
     Dosage: 125 MG, QD
  2. MODOPAR [Suspect]
     Dosage: 62.5 MG 5 TIMES PER DAY
     Dates: start: 20090505
  3. EFFEXOR [Concomitant]
     Dosage: 50 MG, BID
     Dates: start: 20080130
  4. XANAX [Concomitant]
     Dosage: 0.25 MG, TID
     Dates: start: 20080130
  5. IMOVANE [Concomitant]
     Dosage: 7.5 MG, QHS
  6. ATARAX [Concomitant]
     Dosage: 25 MG, TID
     Dates: start: 20080125
  7. COMTAN [Suspect]
     Dosage: 0.5 TABLET 3 TIMES PER DAY
     Route: 048
     Dates: start: 20071205
  8. STALEVO 100 [Suspect]
     Indication: PARKINSON'S DISEASE
     Dosage: 1 TABLET 5 TIMES PER DAY
     Route: 048
  9. MODOPAR [Suspect]
     Dosage: 0.5 DF, FIVE TIME DAILY
     Dates: start: 20070830
  10. MODOPAR [Suspect]
     Dosage: 250 MG AT 1 CAPSULE 3 TIMES PER DAY, MODOPAR 125 MG AT 1 TABLET IN THE MORNING, MODOPAR 62.5
     Dates: start: 20060622
  11. EFFEXOR [Concomitant]
     Dosage: 50 MG, QD
     Dates: start: 20060622
  12. XANAX [Concomitant]
     Dosage: 0.5 MG, UNK
     Dates: start: 20080530
  13. ACETAMINOPHEN [Concomitant]
  14. KETOCONAZOLE [Concomitant]
     Dosage: UNK UKN, UNK
     Dates: start: 20060918
  15. STALEVO 100 [Suspect]
     Dosage: 1 DF, QID
     Route: 048
     Dates: start: 20080304
  16. MODOPAR [Suspect]
     Dosage: 4 TIMES PER DAY
     Route: 048
     Dates: start: 20080530
  17. EFFEXOR [Concomitant]
     Dosage: 50 MG, TID
     Dates: start: 20050331
  18. ACETAMINOPHEN AND TRAMADOL HCL [Concomitant]
     Dosage: 1 DF, QD
     Dates: start: 20080105
  19. ATHYMIL [Concomitant]
     Dosage: 30 MG, QD
     Dates: start: 20080130
  20. CEFUROXIME [Concomitant]
     Dosage: 250 MG, BID
  21. LYSOPAINE [Concomitant]
  22. CARBOCISTEINE [Concomitant]
  23. ECONAZOLE NITRATE [Concomitant]
     Dosage: UNK UKN, UNK
     Dates: start: 20060918
  24. COMTAN [Suspect]
     Dosage: 0.5 TABLET FIVE TIMES PER DAY
     Route: 048
     Dates: start: 20080105
  25. MODOPAR [Suspect]
     Dosage: 62.5 MG AT 4 TIMES PER DAY
     Dates: start: 20080530
  26. EFFEXOR [Concomitant]
     Dosage: 75 MG, BID
     Dates: start: 20080625
  27. XANAX [Concomitant]
     Dosage: 0.5 MG, TID
     Dates: start: 20080625
  28. LOXAPINE HCL [Concomitant]
     Dosage: 15 DRP, TID
     Dates: start: 20080130
  29. COMTAN [Suspect]
     Indication: PARKINSON'S DISEASE
     Dosage: TWICE PER DAY
     Route: 048
     Dates: start: 20050119, end: 20050301
  30. COMTAN [Suspect]
     Dosage: 0.5 TABLET 5 TIMES PER DAY
     Route: 048
     Dates: start: 20060629
  31. MODOPAR [Suspect]
     Dosage: 250 MG AT 1 CAPSULE 5 TIMES PER DAY
     Dates: start: 20070109
  32. MODOPAR [Suspect]
     Dosage: 125 MG 1 TO 3 TIMES PER DAYUNK
     Route: 048
     Dates: start: 20080304
  33. MODOPAR [Suspect]
     Dosage: 125 MG 4 TIMES PER DAY
     Route: 048
     Dates: start: 20080625
  34. EFFEXOR [Concomitant]
     Dosage: 37.5 MG, TID
     Dates: start: 20070109
  35. EFFEXOR [Concomitant]
     Dosage: 50 MG, QD
     Dates: start: 20080105
  36. XANAX [Concomitant]
     Dosage: 0.5 MG, TID
     Dates: start: 20050331
  37. STALEVO 100 [Suspect]
     Dosage: 1 TABLET 5 TIMES PER DAY
     Route: 048
     Dates: start: 20080530
  38. MODOPAR [Suspect]
     Dosage: 125 MG TWICE PER DAY, MODOPAR 62.5 MG AT 1 CAPSULE 4 TIMES PER DAY DAILY
     Dates: start: 20080206
  39. MODOPAR [Suspect]
     Dosage: 125 MG ONCE PER DAY, MODOPAR 62.5 MG AT 5 TIMES PER DAY
     Dates: start: 20080915
  40. PERGOLIDE MESYLATE [Suspect]
     Dosage: UNK UKN, UNK
     Dates: start: 20030201
  41. PRAMIPEXOLE DIHYCHLLORIDE [Suspect]
     Dosage: 0.7 MG, TID
     Dates: start: 20060622
  42. EFFEXOR [Concomitant]
     Dosage: 50 MG, UNK
     Dates: start: 20081029
  43. XANAX [Concomitant]
     Dosage: 0.5 MG, QID
  44. ACETAMINOPHEN AND TRAMADOL HCL [Concomitant]
     Dosage: 1 DF, TID
     Dates: start: 20060622
  45. MODOPAR [Suspect]
     Dosage: UNK UKN, UNK
     Dates: start: 19950101
  46. MODOPAR [Suspect]
     Dosage: 250 MG AT 1 CAPSULE 3 TIMES PER DAY, MODOPAR 125 MG AT 1 TABLET IN THE MORNING, MODOPAR 62.5
     Dates: start: 20070510
  47. MODOPAR [Suspect]
     Dosage: 250 MG AT 1 CAPSULE 3 TIMES PER DAY
     Dates: start: 20071205
  48. MODOPAR [Suspect]
     Dosage: 62.5 MG AT 1 CAPSULE 4 TIMES PER DAY
     Dates: start: 20080304
  49. MODOPAR [Suspect]
     Dosage: 125 MG AT 1 TABLET 2 TO 3 TIMES PER DAY, MODOPAR 62.5 MG AT 1 TABLET 4 TIMES PER
     Route: 048
  50. MODOPAR [Suspect]
     Dosage: 125 MG AT 1 TABLET DAILY, MODOPAR 62.5 MG,
     Dates: start: 20081029
  51. NECYRANE [Concomitant]
     Dosage: UNK UKN, UNK
     Dates: start: 20060313

REACTIONS (25)
  - PSYCHOMOTOR HYPERACTIVITY [None]
  - DEPRESSED MOOD [None]
  - DEPRESSION [None]
  - MUSCLE RIGIDITY [None]
  - EMOTIONAL DISTRESS [None]
  - MUSCULOSKELETAL PAIN [None]
  - FALL [None]
  - WEIGHT INCREASED [None]
  - SUICIDE ATTEMPT [None]
  - SUICIDAL IDEATION [None]
  - BALANCE DISORDER [None]
  - ECONOMIC PROBLEM [None]
  - HYPOMANIA [None]
  - DYSPNOEA [None]
  - CORNEAL REFLEX DECREASED [None]
  - BACK PAIN [None]
  - RED BLOOD CELL SEDIMENTATION RATE INCREASED [None]
  - PSYCHOTIC BEHAVIOUR [None]
  - ABNORMAL BEHAVIOUR [None]
  - COMPULSIVE SHOPPING [None]
  - AKINESIA [None]
  - TREMOR [None]
  - NECK PAIN [None]
  - C-REACTIVE PROTEIN INCREASED [None]
  - LEGAL PROBLEM [None]
